FAERS Safety Report 10192058 (Version 1)
Quarter: 2014Q2

REPORT INFORMATION
  Report Type: Report from Study
  Country: ES (occurrence: ES)
  Receive Date: 20140523
  Receipt Date: 20140523
  Transmission Date: 20141212
  Serious: Yes (Life-Threatening, Hospitalization)
  Sender: FDA-Public Use
  Company Number: ES-SA-2014SA065025

PATIENT
  Age: 78 Year
  Sex: Female

DRUGS (6)
  1. SEGURIL [Suspect]
     Indication: HYPERTENSION
     Route: 048
     Dates: start: 200802, end: 20130626
  2. ALDACTONE [Interacting]
     Indication: HYPERTENSION
     Route: 048
     Dates: start: 200806, end: 20130626
  3. ENALAPRIL [Interacting]
     Indication: HYPERTENSION
     Route: 048
     Dates: start: 200606, end: 20130626
  4. ACETYLSALICYLIC ACID [Concomitant]
     Indication: ATRIAL FIBRILLATION
     Route: 048
  5. OMEPRAZOLE [Concomitant]
     Indication: PROPHYLAXIS
     Route: 048
     Dates: start: 201006, end: 20130626
  6. LORAZEPAM [Concomitant]
     Indication: ANXIETY
     Route: 048
     Dates: start: 200602, end: 20130626

REACTIONS (3)
  - Cardiomyopathy [Recovered/Resolved with Sequelae]
  - Drug interaction [Unknown]
  - Hyperkalaemia [Recovered/Resolved with Sequelae]
